FAERS Safety Report 15055190 (Version 3)
Quarter: 2018Q4

REPORT INFORMATION
  Report Type: Spontaneous
  Country: US (occurrence: US)
  Receive Date: 20180622
  Receipt Date: 20181218
  Transmission Date: 20190204
  Serious: Yes (Disabling, Other)
  Sender: FDA-Public Use
  Company Number: US-OTSUKA-2018_016019

PATIENT
  Sex: Female

DRUGS (6)
  1. ABILIFY [Suspect]
     Active Substance: ARIPIPRAZOLE
     Indication: BIPOLAR DISORDER
     Dosage: 15 MG, QD
     Route: 065
  2. ABILIFY [Suspect]
     Active Substance: ARIPIPRAZOLE
     Dosage: 20 MG, QD
     Route: 065
     Dates: end: 2017
  3. ARIPIPRAZOLE. [Concomitant]
     Active Substance: ARIPIPRAZOLE
     Indication: PRODUCT USED FOR UNKNOWN INDICATION
     Dosage: UNK
     Route: 065
     Dates: start: 20150727, end: 20160329
  4. ABILIFY [Suspect]
     Active Substance: ARIPIPRAZOLE
     Indication: SCHIZOPHRENIA
     Dosage: 5 MG, QD
     Route: 065
     Dates: start: 2006
  5. ROPINIROLE. [Concomitant]
     Active Substance: ROPINIROLE
     Indication: PARKINSON^S DISEASE
     Dosage: UNK
     Route: 065
     Dates: start: 20110316, end: 20111010
  6. ROPINIROLE. [Concomitant]
     Active Substance: ROPINIROLE
     Indication: RESTLESS LEGS SYNDROME

REACTIONS (14)
  - Emotional distress [Unknown]
  - Compulsive sexual behaviour [Unknown]
  - Compulsive shopping [Unknown]
  - Gambling disorder [Recovered/Resolved]
  - Disability [Unknown]
  - Injury [Unknown]
  - Suicide attempt [Unknown]
  - Personal relationship issue [Unknown]
  - Suicidal ideation [Unknown]
  - Condition aggravated [Unknown]
  - Anxiety [Unknown]
  - Economic problem [Unknown]
  - Anhedonia [Unknown]
  - Obsessive-compulsive disorder [Unknown]

NARRATIVE: CASE EVENT DATE: 200705
